FAERS Safety Report 21232287 (Version 2)
Quarter: 2022Q4

REPORT INFORMATION
  Report Type: Spontaneous
  Country: JP (occurrence: JP)
  Receive Date: 20220819
  Receipt Date: 20221109
  Transmission Date: 20230113
  Serious: Yes (Hospitalization, Other)
  Sender: FDA-Public Use
  Company Number: JP-CELLTRION INC.-2022JP013312

PATIENT

DRUGS (1)
  1. INFLIXIMAB [Suspect]
     Active Substance: INFLIXIMAB
     Indication: Colitis ulcerative
     Dosage: ADMINISTERED UNTIL APPROXIMATELY THE END OF MAY (UNSPECIFIED YEAR)
     Route: 065

REACTIONS (6)
  - Cardiac failure [Unknown]
  - Neuropathy peripheral [Unknown]
  - Guillain-Barre syndrome [Unknown]
  - Marchiafava-Bignami disease [Unknown]
  - Central nervous system lesion [Unknown]
  - Emphysema [Unknown]
